FAERS Safety Report 7509586-1 (Version None)
Quarter: 2011Q2

REPORT INFORMATION
  Report Type: 
  Country: None (occurrence: None)
  Receive Date: 20110519
  Receipt Date: 20110509
  Transmission Date: 20111010
  Serious: Yes (Hospitalization)
  Sender: FDA-Public Use
  Company Number: VAL_00569_2011

PATIENT
  Age: 59 Year
  Sex: Female

DRUGS (6)
  1. CALCIUM SANDOZ-CALCIUM CARBONATE/CACLIUM GLUBIONATE/CALCIUM GLUCONATE/ [Suspect]
     Indication: PRODUCT USED FOR UNKNOWN INDICATION
     Dosage: 1500 MG ORAL
     Route: 048
     Dates: start: 20100423, end: 20100708
  2. SUTRIL /01036501/ [Concomitant]
  3. ROCALTROL [Suspect]
     Indication: PRODUCT USED FOR UNKNOWN INDICATION
     Dosage: 0.25 UG ORAL
     Route: 048
     Dates: start: 20100426, end: 20100708
  4. EUTIROX [Concomitant]
  5. CELLCEPT [Concomitant]
  6. PROGRAF [Concomitant]

REACTIONS (1)
  - HYPERCALCAEMIA [None]
